FAERS Safety Report 5840996-4 (Version None)
Quarter: 2008Q3

REPORT INFORMATION
  Report Type: 
  Country: None (occurrence: None)
  Receive Date: 20080811
  Receipt Date: 20080801
  Transmission Date: 20090109
  Serious: Yes (Hospitalization)
  Sender: FDA-Public Use
  Company Number: JP-AMGEN-US291688

PATIENT
  Sex: Female
  Weight: 48 kg

DRUGS (10)
  1. ENBREL [Suspect]
     Indication: RHEUMATOID ARTHRITIS
     Route: 058
     Dates: start: 20080411, end: 20080620
  2. RHEUMATREX [Concomitant]
     Indication: RHEUMATOID ARTHRITIS
     Route: 048
     Dates: start: 20070501
  3. RHEUMATREX [Concomitant]
     Route: 048
  4. LANSOPRAZOLE [Concomitant]
     Indication: REFLUX OESOPHAGITIS
     Route: 048
     Dates: start: 20080411
  5. INDOMETHACIN [Concomitant]
     Indication: ARTHRALGIA
     Route: 048
     Dates: start: 20060901
  6. ISONIAZID [Concomitant]
     Indication: ANTIBIOTIC PROPHYLAXIS
     Route: 048
     Dates: start: 20080411
  7. PREDNISOLONE [Concomitant]
     Indication: ARTHRALGIA
     Dates: start: 20060901, end: 20061201
  8. PREDNISOLONE [Concomitant]
     Dates: start: 20061201, end: 20070501
  9. PREDNISOLONE [Concomitant]
     Dates: start: 20070501
  10. PREDONINE [Concomitant]
     Indication: RHEUMATOID ARTHRITIS
     Route: 048
     Dates: start: 20080411

REACTIONS (2)
  - INTERSTITIAL LUNG DISEASE [None]
  - MALAISE [None]
